FAERS Safety Report 14730755 (Version 1)
Quarter: 2018Q2

REPORT INFORMATION
  Report Type: Spontaneous
  Country: US (occurrence: US)
  Receive Date: 20180406
  Receipt Date: 20180406
  Transmission Date: 20180711
  Serious: Yes (Hospitalization)
  Sender: FDA-Public Use
  Company Number: US-ELI_LILLY_AND_COMPANY-US201804001255

PATIENT
  Sex: Female

DRUGS (1)
  1. BASAGLAR [Suspect]
     Active Substance: INSULIN GLARGINE
     Indication: PRODUCT USED FOR UNKNOWN INDICATION
     Dosage: 19 U, UNKNOWN
     Route: 065

REACTIONS (5)
  - Pollakiuria [Unknown]
  - Hypersomnia [Unknown]
  - Blood glucose increased [Unknown]
  - Fatigue [Unknown]
  - Thirst [Unknown]
